FAERS Safety Report 9735593 (Version 1)
Quarter: 2013Q4

REPORT INFORMATION
  Report Type: Spontaneous
  Country: FR (occurrence: FR)
  Receive Date: 20131206
  Receipt Date: 20131206
  Transmission Date: 20140711
  Serious: Yes (Hospitalization, Other)
  Sender: FDA-Public Use
  Company Number: FR-SA-2013SA124588

PATIENT
  Age: 75 Year
  Sex: Male

DRUGS (8)
  1. JEVTANA [Suspect]
     Indication: PROSTATE CANCER METASTATIC
     Dosage: DOSE:UNSPECIFIED?INFUSION SOLUTION
     Route: 042
     Dates: start: 20110728, end: 20110728
  2. JEVTANA [Suspect]
     Indication: PROSTATE CANCER METASTATIC
     Dosage: DOSE:75% OF DOSAGE?INFUSION SOLUTION
     Route: 042
     Dates: start: 20110818, end: 20110818
  3. JEVTANA [Suspect]
     Indication: PROSTATE CANCER METASTATIC
     Dosage: DOSE:70% OF DOSAGE?INFUSION SOLUTION
     Route: 042
     Dates: start: 20110908, end: 20110908
  4. JEVTANA [Suspect]
     Indication: PROSTATE CANCER METASTATIC
     Dosage: DOSE:75% OF DOSAGE?INFUSION SOLUTION
     Route: 042
     Dates: start: 20111028, end: 20111028
  5. JEVTANA [Suspect]
     Indication: PROSTATE CANCER METASTATIC
     Dosage: INFUSION SOLUTION
     Route: 042
     Dates: start: 20120110, end: 20120110
  6. JEVTANA [Suspect]
     Indication: PROSTATE CANCER METASTATIC
     Dosage: INFUSION SOLUTION
     Route: 042
     Dates: start: 20111125, end: 20111125
  7. JEVTANA [Suspect]
     Indication: PROSTATE CANCER METASTATIC
     Dosage: INFUSION SOLUTION?75% OF DOSAGE
     Route: 042
     Dates: start: 20110929, end: 20110929
  8. NEULASTA [Concomitant]
     Indication: PROPHYLAXIS

REACTIONS (8)
  - Aplasia [Recovered/Resolved]
  - Neutropenia [Recovered/Resolved]
  - Fungal infection [Recovered/Resolved]
  - Leukopenia [Recovered/Resolved]
  - Overdose [Unknown]
  - Diarrhoea [Recovered/Resolved]
  - Dysuria [Recovered/Resolved]
  - Pollakiuria [Recovered/Resolved]
